FAERS Safety Report 25311477 (Version 1)
Quarter: 2025Q2

REPORT INFORMATION
  Report Type: Spontaneous
  Country: US (occurrence: US)
  Receive Date: 20250514
  Receipt Date: 20250514
  Transmission Date: 20250716
  Serious: No
  Sender: ELI LILLY AND COMPANY
  Company Number: US-ELI_LILLY_AND_COMPANY-US202505002243

PATIENT
  Age: 17 Year
  Sex: Female

DRUGS (5)
  1. TALTZ [Suspect]
     Active Substance: IXEKIZUMAB
     Indication: Product used for unknown indication
     Route: 065
  2. TALTZ [Suspect]
     Active Substance: IXEKIZUMAB
     Indication: Product used for unknown indication
     Route: 065
  3. TALTZ [Suspect]
     Active Substance: IXEKIZUMAB
     Route: 065
  4. TALTZ [Suspect]
     Active Substance: IXEKIZUMAB
     Route: 065
  5. WYNZORA [Concomitant]
     Active Substance: BETAMETHASONE DIPROPIONATE\CALCIPOTRIENE
     Indication: Product used for unknown indication

REACTIONS (3)
  - Injection site injury [Not Recovered/Not Resolved]
  - Wound [Not Recovered/Not Resolved]
  - Injection site pain [Unknown]
